FAERS Safety Report 6379722-1 (Version None)
Quarter: 2009Q3

REPORT INFORMATION
  Report Type: 
  Country: None (occurrence: None)
  Receive Date: 20090924
  Receipt Date: 20090924
  Transmission Date: 20100115
  Serious: Yes (Other)
  Sender: FDA-Public Use
  Company Number: None

PATIENT
  Age: 37 Year
  Sex: Male
  Weight: 70.3075 kg

DRUGS (1)
  1. TYGACIL [Suspect]
     Indication: DIABETIC FOOT INFECTION
     Dosage: 100MG Q24H IV DRIP
     Route: 041
     Dates: start: 20090919, end: 20090920

REACTIONS (1)
  - NAUSEA [None]
